FAERS Safety Report 10491440 (Version 1)
Quarter: 2014Q4

REPORT INFORMATION
  Report Type: Spontaneous
  Country: US (occurrence: US)
  Receive Date: 20141002
  Receipt Date: 20141002
  Transmission Date: 20150528
  Serious: No
  Sender: FDA-Public Use
  Company Number: US-GLAXOSMITHKLINE-A1053048A

PATIENT
  Age: 81 Year
  Sex: Male

DRUGS (3)
  1. ADVAIR HFA [Suspect]
     Active Substance: FLUTICASONE PROPIONATE\SALMETEROL XINAFOATE
     Indication: PRODUCT USED FOR UNKNOWN INDICATION
     Dosage: 1PUFF TWICE PER DAY
     Route: 055
  2. IBS MEDICATION [Concomitant]
  3. CODEINE [Concomitant]
     Active Substance: CODEINE

REACTIONS (2)
  - Dyspnoea [Unknown]
  - Product quality issue [Unknown]
